FAERS Safety Report 5677551-5 (Version None)
Quarter: 2008Q1

REPORT INFORMATION
  Report Type: 
  Country: None (occurrence: None)
  Receive Date: 20080324
  Receipt Date: 20080312
  Transmission Date: 20080703
  Serious: Yes (Death)
  Sender: FDA-Public Use
  Company Number: JP-ROCHE-551303

PATIENT
  Age: 70 Year
  Sex: Male
  Weight: 70 kg

DRUGS (9)
  1. PEGASYS [Suspect]
     Dosage: DOSE DECREASED.
     Route: 058
     Dates: start: 20040619, end: 20040619
  2. PEGASYS [Suspect]
     Dosage: DOSE DECREASED
     Route: 058
     Dates: start: 20040626, end: 20050708
  3. PEGASYS [Suspect]
     Route: 058
     Dates: start: 20050719, end: 20080219
  4. COPEGUS [Suspect]
     Dosage: DOSE DECREASED
     Route: 048
     Dates: start: 20070501, end: 20071126
  5. COPEGUS [Suspect]
     Dosage: DIVIDED INTO 2 DOSES
     Route: 048
     Dates: start: 20071127, end: 20080121
  6. COPEGUS [Suspect]
     Route: 048
     Dates: start: 20080122
  7. ENALAPRIL MALEATE [Concomitant]
     Route: 048
     Dates: start: 20070501, end: 20080219
  8. AMLODIN [Concomitant]
     Route: 048
     Dates: start: 20070501, end: 20080219
  9. SELBEX [Concomitant]
     Dosage: FORM: FNE GRANULE
     Route: 048
     Dates: start: 20070501, end: 20080219

REACTIONS (2)
  - CEREBRAL HAEMORRHAGE [None]
  - PRURITUS [None]
